FAERS Safety Report 4751491-8 (Version None)
Quarter: 2005Q3

REPORT INFORMATION
  Report Type: 
  Country: None (occurrence: None)
  Receive Date: 20050824
  Receipt Date: 20050311
  Transmission Date: 20060218
  Serious: Yes (Hospitalization)
  Sender: FDA-Public Use
  Company Number: US-MERCK-0503USA02647

PATIENT
  Age: 64 Year
  Sex: Female
  Weight: 77 kg

DRUGS (8)
  1. VIOXX [Suspect]
     Indication: ARTHRALGIA
     Route: 048
     Dates: start: 20000101, end: 20040901
  2. DARVOCET-N 100 [Concomitant]
     Indication: PAIN
     Route: 065
     Dates: start: 19760101, end: 20040101
  3. COZAAR [Concomitant]
     Route: 048
     Dates: start: 20031001
  4. METOPROLOL [Concomitant]
     Indication: HYPERTENSION
     Route: 065
     Dates: start: 20010101
  5. NITROGLYCERIN [Concomitant]
     Route: 065
     Dates: start: 20010101
  6. LIPITOR [Concomitant]
     Indication: BLOOD CHOLESTEROL INCREASED
     Route: 048
     Dates: start: 20031001
  7. TRICOR [Concomitant]
     Indication: BLOOD CHOLESTEROL INCREASED
     Route: 065
     Dates: start: 20010101
  8. VALIUM [Concomitant]
     Indication: ANXIETY
     Route: 065
     Dates: start: 19700101

REACTIONS (3)
  - CARDIOVASCULAR DISORDER [None]
  - DYSPNOEA [None]
  - HYPERTENSION [None]
